FAERS Safety Report 7277809-2 (Version None)
Quarter: 2011Q1

REPORT INFORMATION
  Report Type: 
  Country: None (occurrence: None)
  Receive Date: 20110207
  Receipt Date: 20110127
  Transmission Date: 20110831
  Serious: Yes (Other)
  Sender: FDA-Public Use
  Company Number: CA-JNJFOC-20110200111

PATIENT
  Sex: Male
  Weight: 73.2 kg

DRUGS (6)
  1. IMURAN [Concomitant]
  2. REMICADE [Suspect]
     Indication: CROHN'S DISEASE
     Route: 042
  3. CRESTOR [Concomitant]
  4. NIASPAN [Concomitant]
  5. ORAL DIABETIC MEDICATION NOS [Concomitant]
     Indication: DIABETES MELLITUS
     Route: 048
  6. MESALAMINE [Concomitant]

REACTIONS (1)
  - DIABETES MELLITUS INADEQUATE CONTROL [None]
